FAERS Safety Report 8843745 (Version 2)
Quarter: 2012Q4

REPORT INFORMATION
  Report Type: Report from Study
  Country: DE (occurrence: DE)
  Receive Date: 20121017
  Receipt Date: 20121030
  Transmission Date: 20130627
  Serious: Yes (Disabling, Other)
  Sender: FDA-Public Use
  Company Number: DE-AMGEN-DEUCT2012064698

PATIENT
  Age: 0 Year
  Weight: 2.26 kg

DRUGS (1)
  1. ETANERCEPT [Suspect]
     Dosage: 50 mg, UNK
     Route: 064
     Dates: start: 20030315, end: 20101109

REACTIONS (6)
  - Exposure during pregnancy [Recovered/Resolved]
  - Foetal growth restriction [Unknown]
  - Pneumothorax [Recovered/Resolved]
  - Hypoglycaemia [Recovered/Resolved]
  - Myoclonus [Recovered/Resolved]
  - Small for dates baby [Recovered/Resolved]
